FAERS Safety Report 25058306 (Version 2)
Quarter: 2025Q2

REPORT INFORMATION
  Report Type: Spontaneous
  Country: JP (occurrence: JP)
  Receive Date: 20250310
  Receipt Date: 20250416
  Transmission Date: 20250717
  Serious: Yes (Death, Hospitalization)
  Sender: MERCK SHARP AND DOHME
  Company Number: JP-MSD-M2022-10089

PATIENT
  Age: 62 Year
  Sex: Female
  Weight: 53 kg

DRUGS (13)
  1. KEYTRUDA [Suspect]
     Active Substance: PEMBROLIZUMAB
     Indication: Uterine cancer
  2. KEYTRUDA [Suspect]
     Active Substance: PEMBROLIZUMAB
     Indication: Uterine cancer
     Dosage: DOSE DESCRIPTION : 200 MILLIGRAM, Q3W?DAILY DOSE : 9.4 MILLIGRAM?REGIMEN DOSE : 200  MILLIGRAM
     Route: 041
     Dates: start: 20220304, end: 20220304
  3. LENVATINIB MESYLATE [Suspect]
     Active Substance: LENVATINIB MESYLATE
     Indication: Uterine cancer
     Dosage: DOSE DESCRIPTION : 20 MILLIGRAM, QD?DAILY DOSE : 20 MILLIGRAM?REGIMEN DOSE : 20  MILLIGRAM
     Route: 048
     Dates: start: 20220304, end: 20220304
  4. LENVATINIB MESYLATE [Suspect]
     Active Substance: LENVATINIB MESYLATE
     Indication: Uterine cancer
     Dosage: DOSE DESCRIPTION : 14 MILLIGRAM, QD?DAILY DOSE : 14 MILLIGRAM?REGIMEN DOSE : 196  MILLIGRAM
     Route: 048
     Dates: start: 20220307, end: 20220320
  5. DOXORUBICIN HYDROCHLORIDE [Suspect]
     Active Substance: DOXORUBICIN HYDROCHLORIDE
     Indication: Thymoma
     Route: 065
  6. DICLOFENAC SODIUM [Concomitant]
     Active Substance: DICLOFENAC SODIUM
     Indication: Analgesic therapy
     Route: 050
     Dates: start: 20211227, end: 20220322
  7. SYMPROIC [Concomitant]
     Active Substance: NALDEMEDINE TOSYLATE
     Indication: Constipation
     Route: 048
     Dates: start: 20211227, end: 20220326
  8. TAPENTADOL HYDROCHLORIDE [Concomitant]
     Active Substance: TAPENTADOL HYDROCHLORIDE
     Indication: Analgesic therapy
     Dosage: DOSE DESCRIPTION : 200 MILLIGRAM, BID?DAILY DOSE : 400 MILLIGRAM?REGIMEN DOSE : 26800  MILLIGRAM
     Route: 048
     Dates: start: 20220119, end: 20220326
  9. MIROGABALIN BESYLATE [Concomitant]
     Active Substance: MIROGABALIN BESYLATE
     Indication: Hypoaesthesia
     Dosage: DOSE DESCRIPTION : 2.5 MILLIGRAM, BID?DAILY DOSE : 5 MILLIGRAM?REGIMEN DOSE : 430  MILLIGRAM
     Route: 048
     Dates: start: 20211227, end: 20220322
  10. CALONAL [Concomitant]
     Active Substance: ACETAMINOPHEN
     Indication: Analgesic therapy
     Dosage: DOSE DESCRIPTION : 1000 MILLIGRAM, TID?DAILY DOSE : 3000 MILLIGRAM?REGIMEN DOSE : 258000  MILLIGRAM
     Route: 048
     Dates: start: 20211227, end: 20220322
  11. OXYCODONE HYDROCHLORIDE [Concomitant]
     Active Substance: OXYCODONE HYDROCHLORIDE
     Route: 048
     Dates: start: 20211227, end: 20220326
  12. METHADONE HYDROCHLORIDE [Concomitant]
     Active Substance: METHADONE HYDROCHLORIDE
     Dosage: DOSE DESCRIPTION : 10 MILLIGRAM, BID?DAILY DOSE : 20 MILLIGRAM?REGIMEN DOSE : 540  MILLIGRAM
     Route: 048
     Dates: start: 20220228, end: 20220326
  13. LINZESS [Concomitant]
     Active Substance: LINACLOTIDE
     Route: 048
     Dates: start: 20211227, end: 20220322

REACTIONS (6)
  - Myocarditis [Fatal]
  - Hepatic function abnormal [Not Recovered/Not Resolved]
  - Nausea [Recovered/Resolved]
  - Hypertension [Recovered/Resolved]
  - Decreased appetite [Unknown]
  - Malaise [Unknown]

NARRATIVE: CASE EVENT DATE: 20220304
